FAERS Safety Report 15139302 (Version 10)
Quarter: 2019Q2

REPORT INFORMATION
  Report Type: Report from Study
  Country: AR (occurrence: AR)
  Receive Date: 20180713
  Receipt Date: 20190626
  Transmission Date: 20190711
  Serious: Yes (Life-Threatening, Hospitalization)
  Sender: FDA-Public Use
  Company Number: AR-ROCHE-2140970

PATIENT
  Age: 38 Year
  Sex: Male
  Weight: 62 kg

DRUGS (21)
  1. N-ACETYLCYSTEINE [Concomitant]
     Active Substance: ACETYLCYSTEINE
     Route: 048
     Dates: start: 20180604
  2. LEVOFLOXACIN. [Concomitant]
     Active Substance: LEVOFLOXACIN
     Route: 042
     Dates: start: 20180728, end: 20180730
  3. LEVOFLOXACIN. [Concomitant]
     Active Substance: LEVOFLOXACIN
     Route: 048
     Dates: start: 20180815
  4. AMOXICILLIN. [Concomitant]
     Active Substance: AMOXICILLIN
     Route: 048
     Dates: start: 20180508, end: 20180514
  5. STREPTOMYCIN [Concomitant]
     Active Substance: STREPTOMYCIN\STREPTOMYCIN SULFATE
     Route: 042
     Dates: start: 20180728, end: 20180730
  6. AMIKACIN. [Concomitant]
     Active Substance: AMIKACIN
     Route: 042
     Dates: start: 20180728, end: 20180730
  7. AMIKACIN. [Concomitant]
     Active Substance: AMIKACIN
     Route: 048
     Dates: start: 20180731
  8. LEVOFLOXACIN. [Concomitant]
     Active Substance: LEVOFLOXACIN
     Route: 048
     Dates: start: 20180731, end: 20180814
  9. N-ACETYLCYSTEINE [Concomitant]
     Active Substance: ACETYLCYSTEINE
     Route: 048
     Dates: start: 20180425
  10. CILASTATINE [Concomitant]
     Active Substance: CILASTATIN
     Route: 042
     Dates: start: 20180728, end: 20180730
  11. MYCOPHENOLATE MOFETIL. [Suspect]
     Active Substance: MYCOPHENOLATE MOFETIL
     Indication: LUPUS NEPHRITIS
     Dosage: AT A STARTING DOSE OF 1500 MG/DAY (OR EQUIVALENT) ADMINISTERED ORALLY IN 2 OR 3 DIVIDED DOSES (AS PE
     Route: 048
     Dates: start: 20170405
  12. ENALAPRIL [Concomitant]
     Active Substance: ENALAPRIL
     Route: 048
     Dates: start: 20170301
  13. OMEPRAZOLE. [Concomitant]
     Active Substance: OMEPRAZOLE
     Route: 048
     Dates: start: 201604
  14. OBINUTUZUMAB. [Suspect]
     Active Substance: OBINUTUZUMAB
     Indication: LUPUS NEPHRITIS
     Dosage: ON DAYS 1, 15, 168, AND 182 (AS PER PROTOCOL)?MOST RECENT DOSE OF OBINUTUZUMAB PRIOR TO SAE ONSET ON
     Route: 042
     Dates: start: 20170426
  15. LEVOFLOXACIN. [Concomitant]
     Active Substance: LEVOFLOXACIN
     Route: 048
     Dates: start: 20180705, end: 20180713
  16. AMOXICILLIN. [Concomitant]
     Active Substance: AMOXICILLIN
     Route: 048
     Dates: start: 20180604, end: 20180627
  17. METHYLPREDNISOLONE. [Suspect]
     Active Substance: METHYLPREDNISOLONE
     Indication: LUPUS NEPHRITIS
     Dosage: MOST RECENT DOSE OF METHYLPREDNISOLONE PRIOR TO SAE ONSET ON: 23/OCT/2017 AT 09:45: 80 MG
     Route: 042
     Dates: start: 20170426
  18. PREDNISONE. [Concomitant]
     Active Substance: PREDNISONE
     Indication: LUPUS NEPHRITIS
     Route: 048
     Dates: start: 20170713
  19. CLAVULANIC ACID [Concomitant]
     Active Substance: CLAVULANIC ACID
     Route: 048
     Dates: start: 20180604, end: 20180627
  20. IMIPENEM [Concomitant]
     Active Substance: IMIPENEM
     Route: 042
     Dates: start: 20180728, end: 20180730
  21. LEVOFLOXACIN. [Concomitant]
     Active Substance: LEVOFLOXACIN
     Route: 048
     Dates: start: 20180420

REACTIONS (3)
  - Pneumonia aspiration [Recovered/Resolved]
  - Tuberculosis [Not Recovered/Not Resolved]
  - Oesophageal fistula [Recovered/Resolved]

NARRATIVE: CASE EVENT DATE: 20180613
